FAERS Safety Report 4364892-7 (Version None)
Quarter: 2004Q2

REPORT INFORMATION
  Report Type: 
  Country: None (occurrence: None)
  Receive Date: 20040526
  Receipt Date: 20040303
  Transmission Date: 20050107
  Serious: Yes (Hospitalization, Disabling, Other)
  Sender: FDA-Public Use
  Company Number: GB-BRISTOL-MYERS SQUIBB COMPANY-12524088

PATIENT
  Age: 64 Year
  Sex: Female

DRUGS (3)
  1. PARAPLATIN [Suspect]
     Indication: OVARIAN CANCER
     Route: 042
     Dates: start: 20031221, end: 20031221
  2. BENDROFLUAZIDE [Concomitant]
     Indication: HYPERTENSION
     Dosage: IN MORNING
     Dates: end: 20040102
  3. ATORVASTATIN CALCIUM [Concomitant]
     Indication: HYPERLIPIDAEMIA

REACTIONS (4)
  - CEREBROVASCULAR ACCIDENT [None]
  - DEEP VEIN THROMBOSIS [None]
  - HYPERLIPIDAEMIA [None]
  - ISCHAEMIC CEREBRAL INFARCTION [None]
